FAERS Safety Report 18991183 (Version 1)
Quarter: 2021Q1

REPORT INFORMATION
  Report Type: Report from Study
  Country: US (occurrence: US)
  Receive Date: 20210310
  Receipt Date: 20210310
  Transmission Date: 20210420
  Serious: Yes (Hospitalization)
  Sender: FDA-Public Use
  Company Number: US-EISAI MEDICAL RESEARCH-EC-2021-088186

PATIENT
  Age: 67 Year
  Sex: Male

DRUGS (4)
  1. LENVIMA [Suspect]
     Active Substance: LENVATINIB
     Route: 048
     Dates: start: 202102, end: 202102
  2. LENVIMA [Suspect]
     Active Substance: LENVATINIB
     Route: 048
     Dates: start: 2021, end: 20210303
  3. LENVIMA [Suspect]
     Active Substance: LENVATINIB
     Indication: RENAL CANCER
     Route: 048
     Dates: start: 20210212, end: 20210219
  4. ELIQUIS [Suspect]
     Active Substance: APIXABAN
     Indication: PULMONARY EMBOLISM
     Dosage: DOSE AND FREQUENCY UNKNOWN
     Route: 065
     Dates: start: 2021

REACTIONS (14)
  - Rash [Unknown]
  - Weight decreased [Unknown]
  - Loss of consciousness [Unknown]
  - Anaemia [Unknown]
  - Posterior reversible encephalopathy syndrome [Recovering/Resolving]
  - Incontinence [Unknown]
  - Nausea [Unknown]
  - Pyrexia [Unknown]
  - Dizziness [Unknown]
  - Hypertension [Unknown]
  - Headache [Unknown]
  - Pulmonary embolism [Unknown]
  - Faeces discoloured [Unknown]
  - Vomiting [Unknown]

NARRATIVE: CASE EVENT DATE: 2021
